FAERS Safety Report 4885057-6 (Version None)
Quarter: 2006Q1

REPORT INFORMATION
  Report Type: 
  Country: None (occurrence: None)
  Receive Date: 20060119
  Receipt Date: 20051005
  Transmission Date: 20060701
  Serious: Yes (Hospitalization)
  Sender: FDA-Public Use
  Company Number: US-MERCK-0510USA05200

PATIENT
  Age: 53 Year
  Sex: Male
  Weight: 91 kg

DRUGS (8)
  1. NEURONTIN [Concomitant]
     Route: 065
  2. [THERAPY UNSPECIFIED] [Concomitant]
     Route: 065
  3. PENICILLIN (UNSPECIFIED) [Concomitant]
     Route: 065
  4. XANAX [Concomitant]
     Route: 065
  5. INDOMETHACIN [Concomitant]
     Route: 065
  6. DARVOCET-N 50 [Concomitant]
     Route: 065
  7. VIOXX [Suspect]
     Indication: ARTHRITIS
     Route: 048
     Dates: start: 20000612, end: 20040610
  8. VIOXX [Suspect]
     Indication: PAIN
     Route: 048
     Dates: start: 20000612, end: 20040610

REACTIONS (2)
  - ACUTE MYOCARDIAL INFARCTION [None]
  - CARDIOVASCULAR DISORDER [None]
